FAERS Safety Report 6508879-4 (Version None)
Quarter: 2009Q4

REPORT INFORMATION
  Report Type: 
  Country: None (occurrence: None)
  Receive Date: 20091221
  Receipt Date: 20090824
  Transmission Date: 20100525
  Serious: No
  Sender: FDA-Public Use
  Company Number: US-ASTRAZENECA-2009SE09569

PATIENT
  Age: 80 Year
  Sex: Female
  Weight: 65.7 kg

DRUGS (1)
  1. CRESTOR [Suspect]
     Indication: BLOOD CHOLESTEROL
     Route: 048
     Dates: start: 20080101

REACTIONS (1)
  - HIGH DENSITY LIPOPROTEIN DECREASED [None]
